FAERS Safety Report 10651738 (Version 1)
Quarter: 2014Q4

REPORT INFORMATION
  Report Type: Spontaneous
  Country: GR (occurrence: GR)
  Receive Date: 20141215
  Receipt Date: 20141215
  Transmission Date: 20150529
  Serious: Yes (Hospitalization)
  Sender: FDA-Public Use
  Company Number: GR-TEVA-527409ISR

PATIENT
  Age: 47 Year
  Sex: Female

DRUGS (6)
  1. DEXATON [Concomitant]
  2. FENISTIL [Concomitant]
     Active Substance: DIMETHINDENE
  3. ZANTAC [Concomitant]
     Active Substance: RANITIDINE HYDROCHLORIDE
  4. ALOXI [Concomitant]
     Active Substance: PALONOSETRON HYDROCHLORIDE
  5. OXALIPLATIN TEVA [Suspect]
     Active Substance: OXALIPLATIN
     Indication: PANCREATIC CARCINOMA
     Route: 042
     Dates: start: 20120621, end: 20120621
  6. 5-FLUOROURACIL [Concomitant]
     Active Substance: FLUOROURACIL
     Indication: PANCREATIC CARCINOMA
     Route: 042
     Dates: start: 20120621, end: 20120621

REACTIONS (3)
  - Choking sensation [Recovered/Resolved]
  - Chills [Recovered/Resolved]
  - Neuromyopathy [Recovered/Resolved]

NARRATIVE: CASE EVENT DATE: 20120621
